FAERS Safety Report 9053008 (Version 1)
Quarter: 2013Q1

REPORT INFORMATION
  Report Type: Spontaneous
  Country: US (occurrence: US)
  Receive Date: 20130208
  Receipt Date: 20130208
  Transmission Date: 20140127
  Serious: Yes (Hospitalization)
  Sender: FDA-Public Use
  Company Number: US-BIOGENIDEC-2013BI010489

PATIENT
  Age: 32 Year
  Sex: Female

DRUGS (2)
  1. AVONEX [Suspect]
     Indication: MULTIPLE SCLEROSIS
     Route: 030
     Dates: start: 20120315, end: 20120925
  2. AVONEX [Suspect]
     Indication: MULTIPLE SCLEROSIS
     Route: 030
     Dates: start: 20120925

REACTIONS (6)
  - Road traffic accident [Recovered/Resolved]
  - Fall [Recovered/Resolved]
  - Soft tissue injury [Unknown]
  - Foot fracture [Unknown]
  - Excoriation [Unknown]
  - Asthenia [Unknown]
